FAERS Safety Report 19553691 (Version 2)
Quarter: 2021Q3

REPORT INFORMATION
  Report Type: Spontaneous
  Country: FR (occurrence: FR)
  Receive Date: 20210714
  Receipt Date: 20210812
  Transmission Date: 20211014
  Serious: Yes (Hospitalization, Congenital Anomaly, Other)
  Sender: FDA-Public Use
  Company Number: FR-SA-2021SA223967

PATIENT
  Age: 73 Year
  Sex: Male

DRUGS (9)
  1. RASBURICASE [Suspect]
     Active Substance: RASBURICASE
     Indication: ADULT T-CELL LYMPHOMA/LEUKAEMIA
     Dosage: 15 MG
     Route: 042
     Dates: start: 20190405, end: 20190410
  2. AZATHIOPRINE. [Suspect]
     Active Substance: AZATHIOPRINE
     Indication: ADULT T-CELL LYMPHOMA/LEUKAEMIA
     Dosage: 300 MG/8
     Dates: start: 20190404
  3. INTERFERON ALFA NOS [Suspect]
     Active Substance: INTERFERON ALFA-2A OR INTERFERON ALFA-2B
     Indication: ADULT T-CELL LYMPHOMA/LEUKAEMIA
     Dosage: 6 MIU, QD
     Route: 042
     Dates: start: 20190404
  4. RASBURICASE [Suspect]
     Active Substance: RASBURICASE
     Indication: PROPHYLAXIS
  5. CYCLOPHOSPHAMIDE. [Concomitant]
     Active Substance: CYCLOPHOSPHAMIDE
     Indication: ADULT T-CELL LYMPHOMA/LEUKAEMIA
  6. DOXORUBICIN HYDROCHLORIDE. [Concomitant]
     Active Substance: DOXORUBICIN HYDROCHLORIDE
     Indication: ADULT T-CELL LYMPHOMA/LEUKAEMIA
  7. VINCRISTINE SULFATE. [Concomitant]
     Active Substance: VINCRISTINE SULFATE
     Indication: ADULT T-CELL LYMPHOMA/LEUKAEMIA
     Dosage: UNK
  8. PREDNISONE. [Concomitant]
     Active Substance: PREDNISONE
     Indication: ADULT T-CELL LYMPHOMA/LEUKAEMIA
  9. RETROVIR [Concomitant]
     Active Substance: ZIDOVUDINE
     Indication: HUMAN T-CELL LYMPHOTROPIC VIRUS TYPE I INFECTION

REACTIONS (4)
  - Haemolytic anaemia [Recovering/Resolving]
  - Anaemia [Recovering/Resolving]
  - Glycogen storage disease type I [Unknown]
  - Haemolysis [Unknown]

NARRATIVE: CASE EVENT DATE: 2016
